FAERS Safety Report 25651604 (Version 2)
Quarter: 2025Q3

REPORT INFORMATION
  Report Type: Spontaneous
  Country: US (occurrence: US)
  Receive Date: 20250806
  Receipt Date: 20250910
  Transmission Date: 20251020
  Serious: Yes (Other)
  Sender: PFIZER
  Company Number: US-PFIZER INC-202500158134

PATIENT
  Age: 56 Year
  Sex: Female
  Weight: 63.039 kg

DRUGS (1)
  1. XELJANZ [Suspect]
     Active Substance: TOFACITINIB CITRATE
     Indication: Colitis ulcerative
     Route: 048
     Dates: start: 201508

REACTIONS (1)
  - Blindness [Unknown]

NARRATIVE: CASE EVENT DATE: 20200101
